FAERS Safety Report 7683028-8 (Version None)
Quarter: 2011Q3

REPORT INFORMATION
  Report Type: 
  Country: None (occurrence: None)
  Receive Date: 20110815
  Receipt Date: 20110808
  Transmission Date: 20111222
  Serious: Yes (Hospitalization)
  Sender: FDA-Public Use
  Company Number: HU-TEVA-295527ISR

PATIENT
  Sex: Male

DRUGS (3)
  1. SPIRONOLACTONE [Interacting]
  2. ACE INHIBITOR NOS [Interacting]
  3. FUROSEMIDE [Suspect]

REACTIONS (3)
  - ASTHENIA [None]
  - HYPERKALAEMIA [None]
  - DRUG INTERACTION [None]
